FAERS Safety Report 21991872 (Version 1)
Quarter: 2023Q1

REPORT INFORMATION
  Report Type: Spontaneous
  Country: GB (occurrence: GB)
  Receive Date: 20230214
  Receipt Date: 20230214
  Transmission Date: 20230417
  Serious: Yes (Other)
  Sender: FDA-Public Use
  Company Number: None

PATIENT
  Age: 85 Year
  Sex: Male

DRUGS (1)
  1. IOVERSOL [Suspect]
     Active Substance: IOVERSOL
     Indication: Computerised tomogram intestine
     Route: 042
     Dates: start: 20221122, end: 20221122

REACTIONS (3)
  - Nephropathy toxic [Unknown]
  - Chronic kidney disease [Unknown]
  - Rash pruritic [Recovered/Resolved]

NARRATIVE: CASE EVENT DATE: 20221122
